FAERS Safety Report 4719285-7 (Version None)
Quarter: 2005Q3

REPORT INFORMATION
  Report Type: 
  Country: None (occurrence: None)
  Receive Date: 20050721
  Receipt Date: 20040720
  Transmission Date: 20060218
  Serious: No
  Sender: FDA-Public Use
  Company Number: US-GLAXOSMITHKLINE-A0519047A

PATIENT
  Age: 38 Year
  Sex: Male

DRUGS (3)
  1. MALARONE [Suspect]
     Indication: MALARIA
     Route: 048
  2. CIPRO [Concomitant]
  3. UNKNOWN MEDICATION [Concomitant]

REACTIONS (1)
  - VISUAL DISTURBANCE [None]
